APPROVED DRUG PRODUCT: ARIPIPRAZOLE
Active Ingredient: ARIPIPRAZOLE
Strength: 1MG/ML
Dosage Form/Route: SOLUTION;ORAL
Application: A212870 | Product #001 | TE Code: AA
Applicant: VISTAPHARM LLC
Approved: Dec 26, 2019 | RLD: No | RS: No | Type: RX